FAERS Safety Report 24187484 (Version 1)
Quarter: 2024Q3

REPORT INFORMATION
  Report Type: Spontaneous
  Country: SA (occurrence: SA)
  Receive Date: 20240808
  Receipt Date: 20240808
  Transmission Date: 20241016
  Serious: Yes (Other)
  Sender: RANBAXY
  Company Number: SA-SUN PHARMACEUTICAL INDUSTRIES LTD-2024RR-461396

PATIENT
  Age: 41 Year
  Sex: Male

DRUGS (4)
  1. DASATINIB [Suspect]
     Active Substance: DASATINIB
     Indication: Chronic myeloid leukaemia
     Dosage: 100 MILLIGRAM, QD
     Route: 065
     Dates: start: 202012, end: 202202
  2. NILOTINIB [Suspect]
     Active Substance: NILOTINIB
     Indication: Chronic myeloid leukaemia
     Dosage: 300 MILLIGRAM, TWICE A DAY
     Route: 065
     Dates: start: 202203, end: 202206
  3. HYDROCORTISONE [Suspect]
     Active Substance: HYDROCORTISONE\HYDROCORTISONE ACETATE
     Indication: Keratosis pilaris
     Dosage: UNK
     Route: 003
  4. ADAPALENE [Suspect]
     Active Substance: ADAPALENE
     Indication: Keratosis pilaris
     Dosage: UNK
     Route: 003

REACTIONS (3)
  - Osteonecrosis of jaw [Unknown]
  - Keratosis pilaris [Recovering/Resolving]
  - Therapeutic product effect incomplete [Unknown]
